FAERS Safety Report 12267319 (Version 2)
Quarter: 2016Q4

REPORT INFORMATION
  Report Type: Spontaneous
  Country: GB (occurrence: GB)
  Receive Date: 20160414
  Receipt Date: 20161114
  Transmission Date: 20170207
  Serious: Yes (Other)
  Sender: FDA-Public Use
  Company Number: GB-ASTRAZENECA-2016SE37782

PATIENT
  Age: 29 Year
  Sex: Female
  Weight: 78 kg

DRUGS (11)
  1. CYANOCOBALAMIN. [Concomitant]
     Active Substance: CYANOCOBALAMIN
     Dosage: USE AS DIRECTED
     Dates: start: 20150713
  2. HYDROXOCOBALAMIN [Concomitant]
     Active Substance: HYDROXOCOBALAMIN
     Dosage: USE AS DIRECTED
     Dates: start: 20160323
  3. OMEPRAZOLE. [Suspect]
     Active Substance: OMEPRAZOLE
     Route: 048
     Dates: start: 20150729
  4. AMOXICILLIN. [Concomitant]
     Active Substance: AMOXICILLIN
     Indication: ANTIBIOTIC THERAPY
     Dates: start: 20160211, end: 20160218
  5. RANITIDINE. [Concomitant]
     Active Substance: RANITIDINE
     Indication: DYSPEPSIA
     Dates: start: 20160311
  6. TEMAZEPAM. [Concomitant]
     Active Substance: TEMAZEPAM
     Dosage: INTERMITTENTLY AT NIGHT
     Dates: start: 20160211, end: 20160225
  7. OMEPRAZOLE. [Suspect]
     Active Substance: OMEPRAZOLE
     Route: 048
     Dates: start: 20140527, end: 201602
  8. AMITRIPTYLINE HYDROCHLORIDE. [Concomitant]
     Active Substance: AMITRIPTYLINE HYDROCHLORIDE
     Dosage: START WITH 10MG AT NIGHT BUT CAN INCREASE SLOWLY
     Dates: start: 20160308
  9. CITALOPRAM [Concomitant]
     Active Substance: CITALOPRAM HYDROBROMIDE
     Indication: DEPRESSED MOOD
     Dates: start: 20160114
  10. CERAZETTE [Concomitant]
     Active Substance: DESOGESTREL
     Dates: start: 20160201
  11. DESOGESTREL [Concomitant]
     Active Substance: DESOGESTREL
     Dates: start: 20160211

REACTIONS (4)
  - Nystagmus [Recovered/Resolved]
  - Condition aggravated [Recovered/Resolved]
  - Vitamin B1 deficiency [Recovered/Resolved]
  - Vertigo [Recovered/Resolved]

NARRATIVE: CASE EVENT DATE: 20150804
